FAERS Safety Report 10087999 (Version 1)
Quarter: 2014Q2

REPORT INFORMATION
  Report Type: Spontaneous
  Country: US (occurrence: US)
  Receive Date: 20140420
  Receipt Date: 20140420
  Transmission Date: 20141212
  Serious: No
  Sender: FDA-Public Use
  Company Number: US-009507513-1404USA009735

PATIENT
  Age: 48 Year
  Sex: Male

DRUGS (11)
  1. PRINIVIL [Suspect]
     Indication: HYPERTENSION
     Dosage: 40MG DAILY
     Route: 048
  2. PRINIVIL [Suspect]
     Dosage: 20MG
     Route: 048
  3. HYDROCHLOROTHIAZIDE [Suspect]
     Indication: HYPERTENSION
     Dosage: 25MG
     Route: 048
  4. NITROGLYCERIN [Suspect]
     Indication: HYPERTENSION
     Dosage: 60MG DAILY
     Route: 060
  5. ASPIRIN [Concomitant]
     Indication: HYPERTENSION
     Dosage: 81MG
  6. CLOPIDOGREL [Concomitant]
     Indication: HYPERTENSION
     Dosage: 75MG
  7. AMLODIPINE [Concomitant]
     Indication: HYPERTENSION
     Dosage: 10MG
  8. CARVEDILOL [Suspect]
     Indication: HYPERTENSION
     Dosage: 6.25 MG, BID
  9. CARVEDILOL [Suspect]
     Dosage: 25 MG, BID
  10. MINOXIDIL [Suspect]
     Indication: HYPERTENSION
     Dosage: 5MG
  11. NIFEDIPINE [Suspect]
     Dosage: 60 MG, UNK

REACTIONS (1)
  - Drug ineffective [Recovered/Resolved]
